FAERS Safety Report 10097206 (Version 1)
Quarter: 2014Q2

REPORT INFORMATION
  Report Type: Spontaneous
  Country: FR (occurrence: FR)
  Receive Date: 20140422
  Receipt Date: 20140422
  Transmission Date: 20141212
  Serious: Yes (Other)
  Sender: FDA-Public Use
  Company Number: PHHY2014FR046429

PATIENT
  Age: 14 Year
  Sex: Male

DRUGS (2)
  1. BENZYLPENICILLIN [Suspect]
     Indication: OSTEOCHONDROSIS
     Dosage: 2.4 MIU, EVERY 15 DAYS
     Route: 030
  2. LIDOCAINE [Concomitant]
     Dosage: 0.5 ML, EVERY 15 DAYS

REACTIONS (13)
  - Embolia cutis medicamentosa [Unknown]
  - Muscle oedema [Unknown]
  - Areflexia [Recovered/Resolved]
  - Musculoskeletal pain [Unknown]
  - Musculoskeletal discomfort [Unknown]
  - Hypoaesthesia [Unknown]
  - Monoparesis [Recovering/Resolving]
  - Skin lesion [Recovered/Resolved]
  - Skin necrosis [Unknown]
  - Rash [Unknown]
  - Pain in extremity [Unknown]
  - Injection site pain [Unknown]
  - Testicular torsion [Unknown]
